FAERS Safety Report 21947431 (Version 1)
Quarter: 2023Q1

REPORT INFORMATION
  Report Type: Report from Study
  Country: US (occurrence: US)
  Receive Date: 20230202
  Receipt Date: 20230202
  Transmission Date: 20230418
  Serious: No
  Sender: FDA-Public Use
  Company Number: US-ACADIA PHARMACEUTICALS INC.-ACA-2023-PIM-000099

PATIENT
  Age: 52 Year
  Sex: Female

DRUGS (19)
  1. NUPLAZID [Interacting]
     Active Substance: PIMAVANSERIN TARTRATE
     Indication: Parkinson^s disease psychosis
     Dosage: 34 MILLIGRAM, QD
     Route: 048
     Dates: start: 20221003
  2. NUPLAZID [Interacting]
     Active Substance: PIMAVANSERIN TARTRATE
     Indication: Hallucination
  3. NUPLAZID [Interacting]
     Active Substance: PIMAVANSERIN TARTRATE
     Indication: Delusion
  4. NUPLAZID [Interacting]
     Active Substance: PIMAVANSERIN TARTRATE
     Indication: Psychotic disorder
  5. NUPLAZID [Interacting]
     Active Substance: PIMAVANSERIN TARTRATE
     Indication: Parkinson^s disease
  6. RYTARY [Interacting]
     Active Substance: CARBIDOPA\LEVODOPA
  7. ENTACAPONE [Concomitant]
     Active Substance: ENTACAPONE
  8. BACLOFEN [Concomitant]
     Active Substance: BACLOFEN
  9. CITALOPRAM [Concomitant]
     Active Substance: CITALOPRAM HYDROBROMIDE
  10. DOCUSATE [Concomitant]
     Active Substance: DOCUSATE
  11. LAMOTRIGINE [Concomitant]
     Active Substance: LAMOTRIGINE
  12. TRAZODONE [Concomitant]
     Active Substance: TRAZODONE HYDROCHLORIDE
  13. CLONAZEPAM [Concomitant]
     Active Substance: CLONAZEPAM
  14. MELATONIN [Concomitant]
     Active Substance: MELATONIN
  15. ADVIL [Concomitant]
     Active Substance: IBUPROFEN
  16. ACETAMINOPHEN [Concomitant]
     Active Substance: ACETAMINOPHEN
  17. VITAMINS [Concomitant]
     Active Substance: VITAMINS
  18. MAGNESIUM [Concomitant]
     Active Substance: MAGNESIUM
  19. ELECTROLYTE SOLUTIONS [ELECTROLYTES NOS] [Concomitant]

REACTIONS (7)
  - Drug interaction [Unknown]
  - SARS-CoV-2 test positive [Recovered/Resolved]
  - Dystonia [Unknown]
  - Speech disorder [Unknown]
  - Tremor [Unknown]
  - Back pain [Unknown]
  - Confusional state [Unknown]

NARRATIVE: CASE EVENT DATE: 20221219
